FAERS Safety Report 8342649-X (Version None)
Quarter: 2012Q2

REPORT INFORMATION
  Report Type: 
  Country: None (occurrence: None)
  Receive Date: 20120508
  Receipt Date: 20090915
  Transmission Date: 20120825
  Serious: No
  Sender: FDA-Public Use
  Company Number: 2009BI029703

PATIENT
  Age: 41 Year
  Sex: Female

DRUGS (1)
  1. TYSABRI [Suspect]
     Indication: MULTIPLE SCLEROSIS
     Route: 042
     Dates: start: 20090723

REACTIONS (12)
  - VOMITING [None]
  - INFUSION SITE HAEMATOMA [None]
  - DYSGEUSIA [None]
  - EAR INFECTION [None]
  - LOSS OF CONSCIOUSNESS [None]
  - SINUSITIS [None]
  - HEADACHE [None]
  - DIZZINESS [None]
  - FALL [None]
  - INFLUENZA [None]
  - BALANCE DISORDER [None]
  - NAUSEA [None]
